FAERS Safety Report 23633844 (Version 5)
Quarter: 2024Q3

REPORT INFORMATION
  Report Type: Spontaneous
  Country: FR (occurrence: FR)
  Receive Date: 20240314
  Receipt Date: 20240823
  Transmission Date: 20241016
  Serious: Yes (Death, Other)
  Sender: MYLAN
  Company Number: FR-ROCHE-3515673

PATIENT
  Age: 64 Year
  Sex: Male

DRUGS (28)
  1. GEMCITABINE [Suspect]
     Active Substance: GEMCITABINE
     Indication: Post transplant lymphoproliferative disorder
     Dosage: UNK
     Route: 065
  2. GEMCITABINE [Suspect]
     Active Substance: GEMCITABINE
     Indication: Lymphoma
  3. METRONIDAZOLE [Suspect]
     Active Substance: METRONIDAZOLE
     Indication: Giardiasis
     Dosage: UNK
     Route: 065
  4. OXALIPLATIN [Suspect]
     Active Substance: OXALIPLATIN
     Indication: Post transplant lymphoproliferative disorder
     Dosage: UNK
     Route: 065
  5. OXALIPLATIN [Suspect]
     Active Substance: OXALIPLATIN
     Indication: Lymphoma
  6. EVEROLIMUS [Suspect]
     Active Substance: EVEROLIMUS
     Indication: Post transplant lymphoproliferative disorder
     Dosage: UNK
     Route: 065
  7. EVEROLIMUS [Suspect]
     Active Substance: EVEROLIMUS
     Indication: Lymphoma
  8. PREDNISOLONE [Suspect]
     Active Substance: PREDNISOLONE
     Indication: Post transplant lymphoproliferative disorder
     Dosage: UNK
     Route: 065
  9. PREDNISOLONE [Suspect]
     Active Substance: PREDNISOLONE
     Indication: Lymphoma
  10. TACROLIMUS [Suspect]
     Active Substance: TACROLIMUS
     Indication: Post transplant lymphoproliferative disorder
     Dosage: UNK
     Route: 065
  11. TACROLIMUS [Suspect]
     Active Substance: TACROLIMUS
     Indication: Lymphoma
  12. ETOPOSIDE [Suspect]
     Active Substance: ETOPOSIDE
     Indication: Post transplant lymphoproliferative disorder
     Dosage: UNK
     Route: 065
  13. ETOPOSIDE [Suspect]
     Active Substance: ETOPOSIDE
     Indication: Lymphoma
  14. VINCRISTINE [Suspect]
     Active Substance: VINCRISTINE
     Indication: Post transplant lymphoproliferative disorder
     Dosage: UNK
     Route: 065
  15. VINCRISTINE [Suspect]
     Active Substance: VINCRISTINE
     Indication: Lymphoma
  16. RITUXIMAB [Suspect]
     Active Substance: RITUXIMAB
     Indication: Post transplant lymphoproliferative disorder
     Dosage: 375 MILLIGRAM/SQ. METER (4 INFUSIONS ONE WEEK PART)
     Route: 042
  17. RITUXIMAB [Suspect]
     Active Substance: RITUXIMAB
     Indication: Lymphoma
  18. CYCLOPHOSPHAMIDE [Suspect]
     Active Substance: CYCLOPHOSPHAMIDE
     Indication: Post transplant lymphoproliferative disorder
     Dosage: UNK
     Route: 065
  19. CYCLOPHOSPHAMIDE [Suspect]
     Active Substance: CYCLOPHOSPHAMIDE
     Indication: Lymphoma
  20. DOXORUBICIN [Suspect]
     Active Substance: DOXORUBICIN
     Indication: Post transplant lymphoproliferative disorder
     Dosage: UNK
     Route: 065
  21. DOXORUBICIN [Suspect]
     Active Substance: DOXORUBICIN
     Indication: Lymphoma
  22. NITAZOXANIDE [Suspect]
     Active Substance: NITAZOXANIDE
     Indication: Norovirus infection
     Dosage: 500 MILLIGRAM, BID
     Route: 065
  23. IFOSFAMIDE [Suspect]
     Active Substance: IFOSFAMIDE
     Indication: Post transplant lymphoproliferative disorder
     Dosage: UNK
     Route: 065
  24. IFOSFAMIDE [Suspect]
     Active Substance: IFOSFAMIDE
     Indication: Lymphoma
  25. FAVIPIRAVIR [Suspect]
     Active Substance: FAVIPIRAVIR
     Indication: Norovirus infection
     Dosage: 1200 MILLIGRAM, BID (D1 TO 13)
     Route: 065
  26. FAVIPIRAVIR [Suspect]
     Active Substance: FAVIPIRAVIR
     Dosage: 1600 MILLIGRAM, BID (D14 TO 23)
     Route: 065
  27. FAVIPIRAVIR [Suspect]
     Active Substance: FAVIPIRAVIR
     Dosage: 2400 MILLIGRAM, BID (D24 TO 32)
     Route: 065
  28. FAVIPIRAVIR [Suspect]
     Active Substance: FAVIPIRAVIR
     Dosage: 2600 MILLIGRAM, BID (AT DAY 33)
     Route: 065

REACTIONS (9)
  - Disease progression [Fatal]
  - Bacterial infection [Fatal]
  - Drug ineffective [Fatal]
  - Treatment failure [Fatal]
  - Sepsis [Unknown]
  - Parasitic gastroenteritis [Recovered/Resolved]
  - Pyelonephritis acute [Unknown]
  - Giardiasis [Recovered/Resolved]
  - Norovirus infection [Not Recovered/Not Resolved]
